FAERS Safety Report 22085556 (Version 1)
Quarter: 2023Q1

REPORT INFORMATION
  Report Type: Spontaneous
  Country: US (occurrence: US)
  Receive Date: 20230310
  Receipt Date: 20230310
  Transmission Date: 20230418
  Serious: No
  Sender: FDA-Public Use
  Company Number: US-SANOFI-01515153

PATIENT
  Sex: Female

DRUGS (2)
  1. TOUJEO [Suspect]
     Active Substance: INSULIN GLARGINE
     Indication: Type 1 diabetes mellitus
     Dosage: 50 U, BID
     Route: 065
  2. TOUJEO [Suspect]
     Active Substance: INSULIN GLARGINE
     Dosage: TOUJEO 60 UNITS IN THE MORNING AND 40 UNITS IN THE EVENING
     Route: 065

REACTIONS (7)
  - Pancreatic disorder [Unknown]
  - Biliary cyst [Unknown]
  - Thyroid disorder [Unknown]
  - Blood glucose fluctuation [Unknown]
  - Abdominal operation [Unknown]
  - Off label use [Unknown]
  - Inappropriate schedule of product administration [Unknown]
